FAERS Safety Report 17636377 (Version 1)
Quarter: 2020Q2

REPORT INFORMATION
  Report Type: Spontaneous
  Country: US (occurrence: US)
  Receive Date: 20200403
  Receipt Date: 20200403
  Transmission Date: 20200713
  Serious: Yes (Hospitalization)
  Sender: FDA-Public Use
  Company Number: None

PATIENT
  Sex: Female

DRUGS (22)
  1. PREDNISONE. [Concomitant]
     Active Substance: PREDNISONE
  2. SODIUM CHLOR NEB 7% [Concomitant]
  3. ADVAIR DISKU [Concomitant]
  4. ELIQUIS [Concomitant]
     Active Substance: APIXABAN
  5. AZITHROMYCIN ANHYDROUS. [Concomitant]
     Active Substance: AZITHROMYCIN ANHYDROUS
  6. CLOPIODGREL [Concomitant]
  7. SOTALOL HCL [Concomitant]
     Active Substance: SOTALOL
  8. FUROSEMIDE. [Concomitant]
     Active Substance: FUROSEMIDE
  9. LEVOTHYROXIN [Concomitant]
     Active Substance: LEVOTHYROXINE
  10. RANITIDINE. [Concomitant]
     Active Substance: RANITIDINE
  11. TOBRAMYCIN 300MG/ML 20ML [Suspect]
     Active Substance: TOBRAMYCIN
     Indication: BRONCHIECTASIS
     Dosage: ?          OTHER STRENGTH:300MG/ML 20ML;OTHER DOSE:300MG (5ML);?
     Route: 055
     Dates: start: 20170917
  12. FELODIPINE. [Concomitant]
     Active Substance: FELODIPINE
  13. OMEPRAZOLE. [Concomitant]
     Active Substance: OMEPRAZOLE
  14. FLUTICASONE. [Concomitant]
     Active Substance: FLUTICASONE
  15. SPIRIVA [Concomitant]
     Active Substance: TIOTROPIUM BROMIDE MONOHYDRATE
  16. BENZONATATE. [Concomitant]
     Active Substance: BENZONATATE
  17. CEFDINIR. [Concomitant]
     Active Substance: CEFDINIR
  18. MONTELUKAST [Concomitant]
     Active Substance: MONTELUKAST SODIUM
  19. NITROFURANTIN [Concomitant]
     Active Substance: NITROFURANTOIN
  20. OLMESA MEDOX [Concomitant]
  21. SIMVASTATIN. [Concomitant]
     Active Substance: SIMVASTATIN
  22. AMOX/K CLAV [Concomitant]
     Active Substance: AMOXICILLIN\CLAVULANATE POTASSIUM

REACTIONS (2)
  - Influenza [None]
  - Myocardial infarction [None]
